FAERS Safety Report 4437700-3 (Version None)
Quarter: 2004Q3

REPORT INFORMATION
  Report Type: 
  Country: None (occurrence: None)
  Receive Date: 20040831
  Receipt Date: 20031106
  Transmission Date: 20050211
  Serious: No
  Sender: FDA-Public Use
  Company Number: US-GLAXOSMITHKLINE-A0433280A

PATIENT
  Age: 58 Year
  Sex: Female

DRUGS (2)
  1. ZOVIRAX [Suspect]
     Dosage: 200MG TWICE PER DAY
     Route: 048
  2. EVISTA [Suspect]
     Route: 065

REACTIONS (1)
  - KERATOCONJUNCTIVITIS SICCA [None]
